FAERS Safety Report 19194888 (Version 1)
Quarter: 2021Q2

REPORT INFORMATION
  Report Type: Report from Study
  Country: US (occurrence: US)
  Receive Date: 20210429
  Receipt Date: 20210429
  Transmission Date: 20210717
  Serious: Yes (Hospitalization)
  Sender: FDA-Public Use
  Company Number: US-JNJFOC-20210442269

PATIENT
  Age: 69 Year
  Sex: Female

DRUGS (11)
  1. ELIQUIS [Concomitant]
     Active Substance: APIXABAN
  2. ADEMPAS [Concomitant]
     Active Substance: RIOCIGUAT
  3. LASIX [Concomitant]
     Active Substance: FUROSEMIDE
     Route: 048
  4. POTASSIUM [Concomitant]
     Active Substance: POTASSIUM
  5. MACITENTAN [Suspect]
     Active Substance: MACITENTAN
     Indication: PULMONARY ARTERIAL HYPERTENSION
     Route: 048
     Dates: start: 20190706
  6. METOPROLOL. [Concomitant]
     Active Substance: METOPROLOL
  7. SELEXIPAG [Suspect]
     Active Substance: SELEXIPAG
     Indication: PULMONARY ARTERIAL HYPERTENSION
     Route: 048
     Dates: start: 20210107
  8. LASIX [Concomitant]
     Active Substance: FUROSEMIDE
     Route: 048
  9. SELEXIPAG [Suspect]
     Active Substance: SELEXIPAG
     Route: 048
  10. SELEXIPAG [Suspect]
     Active Substance: SELEXIPAG
     Route: 048
  11. BUMEX [Concomitant]
     Active Substance: BUMETANIDE

REACTIONS (2)
  - Dysuria [Unknown]
  - Pneumonia [Unknown]
